FAERS Safety Report 16088165 (Version 1)
Quarter: 2019Q1

REPORT INFORMATION
  Report Type: Spontaneous
  Country: US (occurrence: US)
  Receive Date: 20190319
  Receipt Date: 20190319
  Transmission Date: 20190418
  Serious: No
  Sender: FDA-Public Use
  Company Number: US-TEVA-2019-US-1026756

PATIENT
  Sex: Female

DRUGS (1)
  1. MONONESSA [Suspect]
     Active Substance: ETHINYL ESTRADIOL\NORGESTIMATE
     Indication: CONTRACEPTION

REACTIONS (2)
  - Menstruation irregular [Unknown]
  - Product quality issue [Unknown]
